FAERS Safety Report 9022490 (Version 5)
Quarter: 2013Q3

REPORT INFORMATION
  Report Type: Spontaneous
  Country: US (occurrence: US)
  Receive Date: 20130118
  Receipt Date: 20130719
  Transmission Date: 20140515
  Serious: Yes (Hospitalization, Other)
  Sender: FDA-Public Use
  Company Number: US-009507513-2011SP057246

PATIENT
  Sex: Female
  Weight: 99.77 kg

DRUGS (9)
  1. NUVARING [Suspect]
     Indication: CONTRACEPTION
     Dosage: UNK
     Route: 067
     Dates: start: 200807, end: 20091205
  2. NUVARING [Suspect]
     Indication: DYSMENORRHOEA
     Dosage: UNK/CONTINUOUSLY
     Route: 067
     Dates: start: 200508
  3. ZANAFLEX [Concomitant]
     Indication: MIGRAINE
     Dosage: 12-16 MG, HS
  4. ZANAFLEX [Concomitant]
     Indication: INSOMNIA
  5. ZOMIG [Concomitant]
     Indication: MIGRAINE
     Dosage: 5 MG, PRN (MAXIMUM 10 DAYS/MONTH)
     Route: 045
  6. ZOLOFT [Concomitant]
     Indication: PRODUCT USED FOR UNKNOWN INDICATION
  7. ALEVE [Concomitant]
     Indication: MIGRAINE
     Dosage: 2 DF BID, PRN
     Route: 048
     Dates: start: 200501
  8. TOPAMAX [Concomitant]
     Indication: PRODUCT USED FOR UNKNOWN INDICATION
     Dosage: 75 MG, HS
  9. [THERAPY UNSPECIFIED] [Concomitant]
     Indication: ATTENTION DEFICIT/HYPERACTIVITY DISORDER

REACTIONS (18)
  - Dilatation ventricular [Unknown]
  - Pulmonary embolism [Unknown]
  - Deep vein thrombosis [Recovering/Resolving]
  - Anxiety [Unknown]
  - Dyspnoea [Unknown]
  - Incorrect drug administration duration [Unknown]
  - Off label use [Unknown]
  - Anaphylactic shock [Unknown]
  - Vulvovaginal rash [Unknown]
  - Oropharyngeal pain [Unknown]
  - Ear infection [Unknown]
  - Streptococcus test positive [Unknown]
  - Fungal infection [Unknown]
  - Fungal infection [Unknown]
  - Pain in extremity [Unknown]
  - Dyspnoea [Unknown]
  - Pain in extremity [Unknown]
  - Local swelling [Unknown]
